FAERS Safety Report 20298179 (Version 2)
Quarter: 2022Q1

REPORT INFORMATION
  Report Type: Spontaneous
  Country: CN (occurrence: CN)
  Receive Date: 20220105
  Receipt Date: 20220304
  Transmission Date: 20220424
  Serious: Yes (Hospitalization)
  Sender: FDA-Public Use
  Company Number: CN-drreddys-LIT/CHN/21/0145526

PATIENT
  Age: 23 Year
  Sex: Female

DRUGS (2)
  1. OLANZAPINE [Suspect]
     Active Substance: OLANZAPINE
     Indication: Schizophrenia
     Route: 048
  2. OLANZAPINE [Suspect]
     Active Substance: OLANZAPINE
     Dosage: OLANZAPINE WAS REDUCED TO 5 MG/D
     Route: 048

REACTIONS (2)
  - Mastitis [Recovering/Resolving]
  - Blood prolactin increased [Recovering/Resolving]
